FAERS Safety Report 5177312-X (Version None)
Quarter: 2006Q4

REPORT INFORMATION
  Report Type: 
  Country: None (occurrence: None)
  Receive Date: 20061218
  Receipt Date: 20060720
  Transmission Date: 20070319
  Serious: No
  Sender: FDA-Public Use
  Company Number: US-AMGEN-KDL187201

PATIENT
  Sex: Male

DRUGS (2)
  1. ENBREL [Suspect]
     Indication: RHEUMATOID ARTHRITIS
     Route: 058
     Dates: start: 20060218
  2. METHOTREXATE [Concomitant]
     Dates: start: 20040218

REACTIONS (2)
  - INJECTION SITE REACTION [None]
  - PAIN IN EXTREMITY [None]
